FAERS Safety Report 7202228-4 (Version None)
Quarter: 2010Q4

REPORT INFORMATION
  Report Type: 
  Country: None (occurrence: None)
  Receive Date: 20101229
  Receipt Date: 20101222
  Transmission Date: 20110411
  Serious: Yes (Hospitalization)
  Sender: FDA-Public Use
  Company Number: BR-ELI_LILLY_AND_COMPANY-BR201012005831

PATIENT
  Sex: Male

DRUGS (5)
  1. HUMALOG MIX 75/25 [Suspect]
     Indication: BLOOD GLUCOSE
     Dosage: 24 IU, 2/D
     Route: 058
     Dates: start: 20080101
  2. HUMALOG [Suspect]
     Indication: BLOOD GLUCOSE
     Dosage: UNK, AS NEEDED
     Route: 058
     Dates: start: 20080101
  3. RASILEZ [Concomitant]
     Indication: CARDIAC DISORDER
     Dosage: UNK, DAILY (1/D)
     Route: 048
  4. ZETIA [Concomitant]
     Indication: BLOOD CHOLESTEROL
     Dosage: UNK, DAILY (1/D)
     Route: 048
  5. NEBIVOLOL HCL [Concomitant]
     Indication: HYPERTENSION
     Dosage: UNK, DAILY (1/D)
     Route: 048

REACTIONS (4)
  - CEREBROVASCULAR ACCIDENT [None]
  - GALLBLADDER OPERATION [None]
  - MALAISE [None]
  - VOMITING [None]
